FAERS Safety Report 8930089 (Version 1)
Quarter: 2012Q4

REPORT INFORMATION
  Report Type: 
  Country: US (occurrence: US)
  Receive Date: 20121121
  Receipt Date: 20121121
  Transmission Date: 20130627
  Serious: Yes (Other)
  Sender: FDA-Public Use
  Company Number: US-ASTELLAS-CID000000002102887

PATIENT
  Sex: Male

DRUGS (6)
  1. AVASTIN [Suspect]
     Indication: RENAL CANCER
     Dates: start: 200408
  2. TARCEVA [Suspect]
     Indication: RENAL CANCER
     Dates: start: 20041226
  3. INTERLEUKIN 2 [Concomitant]
  4. ZOMETA [Concomitant]
  5. THALIDOMIDE [Concomitant]
  6. AREDIA [Concomitant]

REACTIONS (3)
  - Disease progression [Unknown]
  - Deep vein thrombosis [Unknown]
  - Rash [Unknown]
